FAERS Safety Report 8554090-5 (Version None)
Quarter: 2012Q3

REPORT INFORMATION
  Report Type: 
  Country: None (occurrence: None)
  Receive Date: 20120731
  Receipt Date: 20120724
  Transmission Date: 20120928
  Serious: Yes (Hospitalization)
  Sender: FDA-Public Use
  Company Number: FR-BRISTOL-MYERS SQUIBB COMPANY-16802167

PATIENT
  Age: 74 Year
  Sex: Female

DRUGS (1)
  1. ONGLYZA [Suspect]
     Dosage: 1DF=HALF TABLET

REACTIONS (2)
  - DRUG ADMINISTRATION ERROR [None]
  - ARTHROPATHY [None]
